FAERS Safety Report 13532768 (Version 1)
Quarter: 2017Q2

REPORT INFORMATION
  Report Type: Spontaneous
  Country: US (occurrence: US)
  Receive Date: 20170510
  Receipt Date: 20170510
  Transmission Date: 20170830
  Serious: Yes (Other)
  Sender: FDA-Public Use
  Company Number: US-UNICHEM LABORATORIES LIMITED-UCM201705-000105

PATIENT
  Age: 71 Year
  Sex: Female

DRUGS (6)
  1. DIVALPROEX SODIUM. [Suspect]
     Active Substance: DIVALPROEX SODIUM
     Indication: AFFECTIVE DISORDER
  2. VENLAFAXINE [Concomitant]
     Active Substance: VENLAFAXINE HYDROCHLORIDE
  3. CLONAZEPAM. [Concomitant]
     Active Substance: CLONAZEPAM
  4. DONEPEZIL. [Concomitant]
     Active Substance: DONEPEZIL
  5. CLONAZEPAM. [Concomitant]
     Active Substance: CLONAZEPAM
  6. DIVALPROEX SODIUM. [Suspect]
     Active Substance: DIVALPROEX SODIUM

REACTIONS (3)
  - Parkinsonism [Recovered/Resolved]
  - Fall [Unknown]
  - Cognitive disorder [Unknown]
